FAERS Safety Report 9290048 (Version 1)
Quarter: 2012Q4

REPORT INFORMATION
  Report Type: Spontaneous
  Country: US (occurrence: None)
  Receive Date: 20121001
  Receipt Date: 20121001
  Transmission Date: 20130627
  Serious: Yes (Hospitalization, Other)
  Sender: FDA-Public Use
  Company Number: USA/USA/12/0025994

PATIENT
  Age: 80 Year
  Sex: Female

DRUGS (2)
  1. CIPROFLOXACIN [Suspect]
     Indication: BLADDER INFECTION
     Route: 048
     Dates: start: 20120809, end: 20120809
  2. COMBIVENT (COMBIVENT) [Concomitant]

REACTIONS (3)
  - Dyspnoea [None]
  - Skin discolouration [None]
  - Adverse event [None]
